FAERS Safety Report 7038238-X (Version None)
Quarter: 2010Q4

REPORT INFORMATION
  Report Type: 
  Country: None (occurrence: None)
  Receive Date: 20101011
  Receipt Date: 20091113
  Transmission Date: 20110411
  Serious: No
  Sender: FDA-Public Use
  Company Number: US-PFIZER INC-2009298694

PATIENT
  Sex: Female
  Weight: 58.5 kg

DRUGS (5)
  1. NEURONTIN [Suspect]
     Indication: NEURALGIA
     Dosage: UNK
     Dates: start: 20080501, end: 20080501
  2. NEURONTIN [Suspect]
     Indication: PAIN
  3. NEURONTIN [Suspect]
     Indication: ARTHRALGIA
  4. NEURONTIN [Suspect]
     Indication: COMPLEX REGIONAL PAIN SYNDROME
  5. KLONOPIN [Concomitant]
     Dosage: 0.5 MG, 1X/DAY

REACTIONS (1)
  - TINNITUS [None]
